FAERS Safety Report 25558021 (Version 3)
Quarter: 2025Q3

REPORT INFORMATION
  Report Type: Spontaneous
  Country: BR (occurrence: BR)
  Receive Date: 20250715
  Receipt Date: 20250805
  Transmission Date: 20251021
  Serious: Yes (Other)
  Sender: Harrow Health
  Company Number: NVSC2025BR107373

PATIENT
  Age: 71 Year
  Sex: Female
  Weight: 78 kg

DRUGS (7)
  1. MAXIDEX [Suspect]
     Active Substance: DEXAMETHASONE
     Indication: Eye irritation
     Route: 065
     Dates: start: 20250617
  2. MAXIDEX [Suspect]
     Active Substance: DEXAMETHASONE
     Indication: Inflammation
  3. MAXIDEX [Suspect]
     Active Substance: DEXAMETHASONE
     Indication: Conjunctivitis
  4. MAXIDEX [Suspect]
     Active Substance: DEXAMETHASONE
     Indication: Erythema of eyelid
  5. MAXIDEX [Suspect]
     Active Substance: DEXAMETHASONE
     Indication: Eyelid irritation
  6. MAXIDEX [Suspect]
     Active Substance: DEXAMETHASONE
     Indication: Paraesthesia
  7. OLOPATADINE HYDROCHLORIDE [Suspect]
     Active Substance: OLOPATADINE HYDROCHLORIDE
     Indication: Dry eye
     Dates: start: 20250617

REACTIONS (10)
  - Visual impairment [Recovering/Resolving]
  - Retinal vein occlusion [Unknown]
  - Cataract [Unknown]
  - Retinal vascular disorder [Unknown]
  - Macular reflex abnormal [Unknown]
  - Vision blurred [Not Recovered/Not Resolved]
  - Arthralgia [Unknown]
  - Lacrimation increased [Unknown]
  - Gait disturbance [Unknown]
  - Dry eye [Unknown]
